FAERS Safety Report 17349423 (Version 3)
Quarter: 2025Q4

REPORT INFORMATION
  Report Type: Spontaneous
  Country: EU (occurrence: EU)
  Receive Date: 20200130
  Receipt Date: 20251007
  Transmission Date: 20260118
  Serious: No
  Sender: SANOFI AVENTIS
  Company Number: EU-SA-2017SA011398

PATIENT
  Age: 61 Year
  Sex: Male

DRUGS (3)
  1. DOCETAXEL [Suspect]
     Active Substance: DOCETAXEL
     Indication: Prostate cancer
     Dosage: QCY
     Dates: start: 201403, end: 201410
  2. DOCETAXEL [Suspect]
     Active Substance: DOCETAXEL
     Dosage: QCY
     Dates: start: 201502, end: 201507
  3. CABAZITAXEL [Concomitant]
     Active Substance: CABAZITAXEL
     Indication: Prostate cancer
     Dosage: UNK QCY
     Dates: start: 201510, end: 201604

REACTIONS (3)
  - Paraesthesia [Recovered/Resolved]
  - Toxicity to various agents [Recovered/Resolved]
  - Fatigue [Unknown]

NARRATIVE: CASE EVENT DATE: 20140101
